FAERS Safety Report 10207066 (Version 1)
Quarter: 2014Q2

REPORT INFORMATION
  Report Type: Spontaneous
  Country: US (occurrence: US)
  Receive Date: 20140530
  Receipt Date: 20140530
  Transmission Date: 20141212
  Serious: No
  Sender: FDA-Public Use
  Company Number: US-ELI_LILLY_AND_COMPANY-US201405005620

PATIENT
  Sex: Male

DRUGS (3)
  1. CIALIS [Suspect]
     Indication: ERECTILE DYSFUNCTION
     Dosage: 20 MG, PRN
     Route: 065
  2. CIALIS [Suspect]
     Dosage: 5 MG, QD
     Route: 065
  3. VITAMIN B12                        /00056201/ [Concomitant]

REACTIONS (4)
  - Headache [Unknown]
  - Vision blurred [Unknown]
  - Nasal congestion [Unknown]
  - Drug ineffective [Unknown]
